FAERS Safety Report 20072181 (Version 1)
Quarter: 2021Q4

REPORT INFORMATION
  Report Type: Spontaneous
  Country: TR (occurrence: TR)
  Receive Date: 20211116
  Receipt Date: 20211116
  Transmission Date: 20220303
  Serious: Yes (Other)
  Sender: FDA-Public Use
  Company Number: TR-PRA-000086

PATIENT
  Age: 46 Year

DRUGS (3)
  1. METHYLPREDNISOLONE [Suspect]
     Active Substance: METHYLPREDNISOLONE
     Indication: Haemophagocytic lymphohistiocytosis
     Dosage: 60 MG Q24H IV FOR 3 DAYS
     Route: 042
  2. METHYLPREDNISOLONE [Suspect]
     Active Substance: METHYLPREDNISOLONE
     Indication: Haemophagocytic lymphohistiocytosis
     Route: 042
  3. CEFEPIME [Concomitant]
     Active Substance: CEFEPIME HYDROCHLORIDE
     Indication: Febrile neutropenia
     Route: 042

REACTIONS (6)
  - Hypofibrinogenaemia [Recovered/Resolved]
  - Condition aggravated [Recovered/Resolved]
  - Platelet count decreased [Unknown]
  - Transaminases increased [Unknown]
  - Product use in unapproved indication [Unknown]
  - Drug ineffective [Unknown]
